FAERS Safety Report 9338201 (Version 1)
Quarter: 2013Q2

REPORT INFORMATION
  Report Type: Report from Study
  Country: GB (occurrence: GB)
  Receive Date: 20130610
  Receipt Date: 20130610
  Transmission Date: 20140414
  Serious: Yes (Hospitalization)
  Sender: FDA-Public Use
  Company Number: GB-AMGEN-GBRCT2013040415

PATIENT
  Age: 64 Year
  Sex: Female
  Weight: 98 kg

DRUGS (13)
  1. ETANERCEPT [Suspect]
     Indication: PRODUCT USED FOR UNKNOWN INDICATION
     Dosage: 50 MG, WEEKLY
     Route: 065
     Dates: start: 20091006
  2. AMIODARONE [Concomitant]
     Dosage: UNK
     Dates: start: 19960601
  3. BETAMETHASONE [Concomitant]
     Dosage: UNK
     Dates: start: 20081001
  4. PARACETAMOL [Concomitant]
     Dosage: UNK
     Dates: start: 19990601
  5. SIMVASTATIN [Concomitant]
     Dosage: UNK
     Dates: start: 19980601
  6. TRAMADOL [Concomitant]
     Dosage: UNK
     Dates: start: 19960601
  7. WARFARIN [Concomitant]
     Dosage: UNK
     Dates: start: 19960901
  8. LEVOTHYROXINE SODIUM [Concomitant]
     Dosage: UNK
     Dates: start: 20030810
  9. DOUBLEBASE [Concomitant]
     Dosage: UNK
     Dates: start: 20041001
  10. CEPHALEXIN [Concomitant]
     Dosage: UNK
     Dates: start: 20100730
  11. METHOTREXATE [Concomitant]
     Dosage: UNK
     Dates: start: 20110525
  12. FOLIC ACID [Concomitant]
     Dosage: UNK
     Dates: start: 20110525
  13. PENICILLIN NOS [Concomitant]
     Dosage: UNK
     Dates: start: 20101104, end: 20101125

REACTIONS (1)
  - Psoriasis [Recovered/Resolved]
